FAERS Safety Report 6139270-0 (Version None)
Quarter: 2009Q2

REPORT INFORMATION
  Report Type: 
  Country: None (occurrence: None)
  Receive Date: 20090401
  Receipt Date: 20090323
  Transmission Date: 20091009
  Serious: Yes (Hospitalization)
  Sender: FDA-Public Use
  Company Number: US-BIOGENIDEC-2009BI009257

PATIENT
  Age: 56 Year
  Sex: Female

DRUGS (3)
  1. TYSABRI [Suspect]
     Indication: MULTIPLE SCLEROSIS
     Route: 042
  2. TYSABRI [Suspect]
     Route: 042
     Dates: start: 20071217, end: 20090112
  3. AVONEX [Concomitant]
     Indication: MULTIPLE SCLEROSIS
     Route: 030

REACTIONS (6)
  - ASTHENIA [None]
  - DYSPNOEA [None]
  - NERVOUS SYSTEM DISORDER [None]
  - OSTEOPENIA [None]
  - SECONDARY PROGRESSIVE MULTIPLE SCLEROSIS [None]
  - URINARY TRACT INFECTION FUNGAL [None]
